FAERS Safety Report 13113064 (Version 1)
Quarter: 2017Q1

REPORT INFORMATION
  Report Type: Spontaneous
  Country: US (occurrence: US)
  Receive Date: 20170112
  Receipt Date: 20170112
  Transmission Date: 20170428
  Serious: Yes (Other)
  Sender: FDA-Public Use
  Company Number: None

PATIENT
  Age: 46 Year
  Sex: Female
  Weight: 58.5 kg

DRUGS (2)
  1. LEVOTHYROXINE. [Suspect]
     Active Substance: LEVOTHYROXINE
     Indication: HYPOTHYROIDISM
     Dosage: ?          OTHER STRENGTH:MCG;QUANTITY:1 GELCAP;?
     Route: 048
  2. TIROSINT [Suspect]
     Active Substance: LEVOTHYROXINE SODIUM
     Indication: HYPOTHYROIDISM

REACTIONS (2)
  - Alopecia [None]
  - Weight increased [None]

NARRATIVE: CASE EVENT DATE: 20170112
